FAERS Safety Report 9820368 (Version 1)
Quarter: 2014Q1

REPORT INFORMATION
  Report Type: Spontaneous
  Country: US (occurrence: None)
  Receive Date: 20140114
  Receipt Date: 20140114
  Transmission Date: 20141002
  Serious: Yes (Other)
  Sender: FDA-Public Use
  Company Number: None

PATIENT
  Age: 70 Year
  Sex: Female
  Weight: 72.58 kg

DRUGS (9)
  1. EUFLEXXA [Suspect]
     Dates: start: 20131212, end: 20131212
  2. ATENOLOL [Concomitant]
  3. PREVACID [Concomitant]
  4. XANAX [Concomitant]
  5. ZOCOR [Concomitant]
  6. BABY ASPIRIN [Concomitant]
  7. FLEXSEED OIL [Concomitant]
  8. CALCIUM [Concomitant]
  9. MULTIVITAMIN [Concomitant]

REACTIONS (8)
  - Palpitations [None]
  - Back pain [None]
  - Swollen tongue [None]
  - Presyncope [None]
  - Sciatica [None]
  - Arthralgia [None]
  - Condition aggravated [None]
  - Impaired driving ability [None]
